FAERS Safety Report 25480308 (Version 1)
Quarter: 2025Q2

REPORT INFORMATION
  Report Type: Spontaneous
  Country: US (occurrence: US)
  Receive Date: 20250625
  Receipt Date: 20250625
  Transmission Date: 20250717
  Serious: No
  Sender: BANNER
  Company Number: BANN2400178

PATIENT

DRUGS (1)
  1. BAFIERTAM [Suspect]
     Active Substance: MONOMETHYL FUMARATE
     Indication: Product used for unknown indication
     Route: 065

REACTIONS (2)
  - Tinnitus [Unknown]
  - Multiple sclerosis relapse [Unknown]
